FAERS Safety Report 20977697 (Version 1)
Quarter: 2022Q2

REPORT INFORMATION
  Report Type: Spontaneous
  Country: FR (occurrence: FR)
  Receive Date: 20220618
  Receipt Date: 20220618
  Transmission Date: 20220721
  Serious: Yes (Other)
  Sender: FDA-Public Use
  Company Number: None

PATIENT
  Age: 23 Year
  Sex: Female
  Weight: 78 kg

DRUGS (6)
  1. NAPROXEN [Suspect]
     Active Substance: NAPROXEN
     Indication: Poisoning deliberate
     Dosage: 8CP DE 550MG
     Route: 048
     Dates: start: 20201009, end: 20201009
  2. AMOXICILLIN [Suspect]
     Active Substance: AMOXICILLIN
     Indication: Poisoning deliberate
     Dosage: 24CP DE 500MG
     Route: 048
     Dates: start: 20201009, end: 20201009
  3. LUMEFANTRINE [Suspect]
     Active Substance: LUMEFANTRINE
     Indication: Poisoning deliberate
     Dosage: 6CP DE 480MG
     Route: 048
     Dates: start: 20201009, end: 20201009
  4. DAFALGAN CODEINE [Suspect]
     Active Substance: ACETAMINOPHEN\CODEINE PHOSPHATE
     Indication: Poisoning deliberate
     Dosage: 8CP DE 500MG
     Route: 048
     Dates: start: 20201009, end: 20201009
  5. ARTEMETHER [Suspect]
     Active Substance: ARTEMETHER
     Indication: Poisoning deliberate
     Dosage: 6CP DE 80MG
     Route: 048
     Dates: start: 20201009, end: 20201009
  6. DOLIPRANE [Suspect]
     Active Substance: ACETAMINOPHEN
     Indication: Poisoning deliberate
     Route: 048
     Dates: start: 20201009, end: 20201009

REACTIONS (3)
  - Poisoning deliberate [Recovered/Resolved]
  - Vomiting [Recovered/Resolved]
  - Abdominal pain upper [Recovered/Resolved]

NARRATIVE: CASE EVENT DATE: 20201009
